FAERS Safety Report 25307927 (Version 6)
Quarter: 2025Q4

REPORT INFORMATION
  Report Type: Report from Study
  Country: US (occurrence: US)
  Receive Date: 20250513
  Receipt Date: 20251126
  Transmission Date: 20260117
  Serious: Yes (Other)
  Sender: ABBVIE
  Company Number: US-ABBVIE-6276637

PATIENT
  Sex: Female
  Weight: 6 kg

DRUGS (1)
  1. UBROGEPANT [Suspect]
     Active Substance: UBROGEPANT
     Indication: Maternal exposure timing unspecified
     Route: 064

REACTIONS (4)
  - Milk allergy [Not Recovered/Not Resolved]
  - Jaundice [Not Recovered/Not Resolved]
  - Foetal exposure during pregnancy [Unknown]
  - Gastrooesophageal reflux disease [Not Recovered/Not Resolved]

NARRATIVE: CASE EVENT DATE: 20250228
